FAERS Safety Report 25564784 (Version 1)
Quarter: 2025Q3

REPORT INFORMATION
  Report Type: Spontaneous
  Country: US (occurrence: None)
  Receive Date: 20250715
  Receipt Date: 20250715
  Transmission Date: 20251020
  Serious: Yes (Hospitalization, Other)
  Sender: FDA-CTU
  Company Number: None

PATIENT
  Age: 51 Year
  Sex: Male

DRUGS (11)
  1. SIMLANDI [Suspect]
     Active Substance: ADALIMUMAB-RYVK
     Indication: Crohn^s disease
     Route: 058
     Dates: start: 20250207
  2. Simlandi 40mg/0.4ml [Concomitant]
     Dates: start: 20250207
  3. HUMIRA [Concomitant]
     Active Substance: ADALIMUMAB
     Dates: start: 20241122, end: 20250206
  4. Fenofibrate 145mg tablets [Concomitant]
  5. GABAPENTIN [Concomitant]
     Active Substance: GABAPENTIN
     Dates: start: 20250616
  6. Metoprololer succ 50mg [Concomitant]
  7. LISINOPRIL [Concomitant]
     Active Substance: LISINOPRIL
  8. Acetaminophen/cod #4 [Concomitant]
  9. Cholesyramine 4mg packets [Concomitant]
  10. Loperamide 2mg capsules [Concomitant]
  11. Diphenoxylate/atropine 2.5mg tablets [Concomitant]

REACTIONS (1)
  - Guillain-Barre syndrome [None]

NARRATIVE: CASE EVENT DATE: 20250616
